FAERS Safety Report 8092727-8 (Version None)
Quarter: 2012Q1

REPORT INFORMATION
  Report Type: 
  Country: None (occurrence: None)
  Receive Date: 20120128
  Receipt Date: 20110801
  Transmission Date: 20120608
  Serious: No
  Sender: FDA-Public Use
  Company Number: US-ABBOTT-11P-163-0843869-00

PATIENT
  Sex: Female
  Weight: 71.732 kg

DRUGS (7)
  1. HUMIRA [Suspect]
     Indication: RHEUMATOID ARTHRITIS
     Dates: start: 20110606
  2. IBUPROFEN (ADVIL) [Concomitant]
     Indication: INFLAMMATION
  3. PLAQUENIL [Concomitant]
     Indication: RHEUMATOID ARTHRITIS
  4. LEFLUNOMIDE [Concomitant]
     Indication: RHEUMATOID ARTHRITIS
  5. FOLIC ACID [Concomitant]
     Indication: RHEUMATOID ARTHRITIS
  6. ASPIRIN [Concomitant]
     Indication: INFLAMMATION
  7. METHOTREXATE [Concomitant]
     Indication: RHEUMATOID ARTHRITIS

REACTIONS (6)
  - HYPERHIDROSIS [None]
  - PAIN IN EXTREMITY [None]
  - GROIN PAIN [None]
  - SOMNOLENCE [None]
  - FATIGUE [None]
  - TREMOR [None]
